FAERS Safety Report 5668377-7 (Version None)
Quarter: 2008Q1

REPORT INFORMATION
  Report Type: 
  Country: None (occurrence: None)
  Receive Date: 20080315
  Receipt Date: 20080222
  Transmission Date: 20080703
  Serious: No
  Sender: FDA-Public Use
  Company Number: US-ABBOTT-08P-163-0439597-00

PATIENT
  Sex: Male

DRUGS (1)
  1. HUMIRA [Suspect]
     Indication: CROHN'S DISEASE
     Route: 058
     Dates: start: 20071001

REACTIONS (6)
  - BLOOD PRESSURE INCREASED [None]
  - DRY EYE [None]
  - DYSPNOEA [None]
  - EYE IRRITATION [None]
  - PHOTOPHOBIA [None]
  - WEIGHT INCREASED [None]
